FAERS Safety Report 21042219 (Version 3)
Quarter: 2022Q4

REPORT INFORMATION
  Report Type: Spontaneous
  Country: JP (occurrence: JP)
  Receive Date: 20220705
  Receipt Date: 20221006
  Transmission Date: 20230112
  Serious: Yes (Hospitalization, Other)
  Sender: FDA-Public Use
  Company Number: JP-ASTELLAS-2022JP003682

PATIENT
  Age: 9 Year
  Sex: Female
  Weight: 32 kg

DRUGS (19)
  1. PROGRAF [Suspect]
     Active Substance: TACROLIMUS
     Indication: Juvenile idiopathic arthritis
     Route: 048
     Dates: start: 201109, end: 20210126
  2. PROGRAF [Suspect]
     Active Substance: TACROLIMUS
     Route: 048
     Dates: start: 20210330, end: 20210418
  3. PROGRAF [Suspect]
     Active Substance: TACROLIMUS
     Dosage: 2.0 MG, ONCE DAILY
     Route: 048
     Dates: start: 20210419, end: 20210502
  4. PROGRAF [Suspect]
     Active Substance: TACROLIMUS
     Route: 048
     Dates: start: 20210503, end: 20210929
  5. PROGRAF [Suspect]
     Active Substance: TACROLIMUS
     Dosage: 1.0 MG, ONCE DAILY
     Route: 048
     Dates: start: 20210930, end: 20211027
  6. PROGRAF [Suspect]
     Active Substance: TACROLIMUS
     Route: 048
     Dates: start: 20211028, end: 20220509
  7. PROGRAF [Suspect]
     Active Substance: TACROLIMUS
     Route: 048
     Dates: start: 20220510
  8. PREDNISOLONE [Suspect]
     Active Substance: PREDNISOLONE
     Indication: Juvenile idiopathic arthritis
     Route: 048
     Dates: start: 200301, end: 20210404
  9. PREDNISOLONE [Suspect]
     Active Substance: PREDNISOLONE
     Route: 048
     Dates: start: 20210410, end: 20210527
  10. PREDNISOLONE [Suspect]
     Active Substance: PREDNISOLONE
     Route: 048
     Dates: start: 20210528, end: 20210608
  11. PREDNISOLONE [Suspect]
     Active Substance: PREDNISOLONE
     Route: 048
     Dates: start: 20210609, end: 20220308
  12. PREDNISOLONE [Suspect]
     Active Substance: PREDNISOLONE
     Indication: Juvenile idiopathic arthritis
     Route: 048
     Dates: start: 20220309, end: 20220607
  13. PREDNISOLONE [Suspect]
     Active Substance: PREDNISOLONE
     Route: 048
     Dates: start: 20220608
  14. NEXIUM [Suspect]
     Active Substance: ESOMEPRAZOLE MAGNESIUM
     Indication: Juvenile idiopathic arthritis
     Route: 048
     Dates: start: 20190115, end: 20201224
  15. LANSOPRAZOLE [Concomitant]
     Active Substance: LANSOPRAZOLE
     Indication: Juvenile idiopathic arthritis
     Route: 048
     Dates: start: 20150415, end: 20190114
  16. TRAMCET [Concomitant]
     Active Substance: ACETAMINOPHEN\TRAMADOL
     Indication: Juvenile idiopathic arthritis
     Dosage: 0.75 DF, EVERY 12 HOURS
     Route: 048
     Dates: start: 201507
  17. MOSAPRIDE CITRATE [Concomitant]
     Active Substance: MOSAPRIDE CITRATE
     Indication: Functional gastrointestinal disorder
     Route: 048
     Dates: start: 201912, end: 202009
  18. TRIMEBUTINE [Concomitant]
     Active Substance: TRIMEBUTINE
     Indication: Functional gastrointestinal disorder
     Route: 048
     Dates: start: 202002, end: 202009
  19. ACOTIAMIDE HYDROCHLORIDE [Concomitant]
     Active Substance: ACOTIAMIDE HYDROCHLORIDE
     Indication: Functional gastrointestinal disorder
     Route: 048
     Dates: start: 202006, end: 202009

REACTIONS (6)
  - Protein-losing gastroenteropathy [Recovered/Resolved]
  - Hypomagnesaemia [Recovering/Resolving]
  - Hypokalaemia [Recovering/Resolving]
  - Hypocalcaemia [Recovered/Resolved]
  - Gastrointestinal bacterial overgrowth [Recovering/Resolving]
  - Off label use [Unknown]

NARRATIVE: CASE EVENT DATE: 20110901
